FAERS Safety Report 12675036 (Version 2)
Quarter: 2016Q3

REPORT INFORMATION
  Report Type: Spontaneous
  Country: PL (occurrence: PL)
  Receive Date: 20160822
  Receipt Date: 20160914
  Transmission Date: 20161109
  Serious: Yes (Death, Hospitalization, Other)
  Sender: FDA-Public Use
  Company Number: PL-GILEAD-2016-0229503

PATIENT
  Age: 50 Year
  Sex: Female

DRUGS (5)
  1. ZYDELIG [Suspect]
     Active Substance: IDELALISIB
     Indication: B-CELL LYMPHOMA
     Dosage: 150 MG, BID
     Route: 048
     Dates: start: 20160222, end: 20160520
  2. HEVIRAN                            /00587301/ [Concomitant]
     Dosage: 400 MG, BID
     Route: 048
     Dates: start: 20150410, end: 20160623
  3. GOPRAZOL [Concomitant]
     Dosage: 20 MG, QD
     Route: 048
     Dates: start: 20150410, end: 20160623
  4. BISEPTOL [Concomitant]
     Active Substance: SULFAMETHOXAZOLE\TRIMETHOPRIM
     Dosage: 960 MG, QD
     Route: 048
     Dates: start: 20150410, end: 20160623
  5. SPORANOX [Concomitant]
     Active Substance: ITRACONAZOLE
     Dosage: 200 MG, QD
     Route: 048
     Dates: start: 20150410, end: 20160623

REACTIONS (5)
  - Infection [Fatal]
  - Pneumonia [Unknown]
  - Urinary tract infection [Unknown]
  - Fungal infection [Unknown]
  - Agranulocytosis [Unknown]

NARRATIVE: CASE EVENT DATE: 20160519
